FAERS Safety Report 5472860-7 (Version None)
Quarter: 2007Q4

REPORT INFORMATION
  Report Type: 
  Country: None (occurrence: None)
  Receive Date: 20071001
  Receipt Date: 20070926
  Transmission Date: 20080405
  Serious: Yes (Hospitalization)
  Sender: FDA-Public Use
  Company Number: A0684781A

PATIENT
  Age: 66 Year
  Sex: Male
  Weight: 61.4 kg

DRUGS (1)
  1. TOPOTECAN [Suspect]
     Dosage: 3MGM2 CYCLIC
     Route: 042
     Dates: start: 20070605, end: 20070907

REACTIONS (6)
  - ANAEMIA [None]
  - ANOREXIA [None]
  - ASTHENIA [None]
  - DEHYDRATION [None]
  - DYSGEUSIA [None]
  - ILL-DEFINED DISORDER [None]
